FAERS Safety Report 11874575 (Version 1)
Quarter: 2015Q4

REPORT INFORMATION
  Report Type: Spontaneous
  Country: US (occurrence: None)
  Receive Date: 20151228
  Receipt Date: 20151228
  Transmission Date: 20160305
  Serious: Yes (Other)
  Sender: FDA-Public Use
  Company Number: None

PATIENT
  Age: 67 Year
  Sex: Female
  Weight: 54.43 kg

DRUGS (4)
  1. LIOTHYRONINE [Concomitant]
     Active Substance: LIOTHYRONINE
  2. VITAMIN D [Concomitant]
     Active Substance: CHOLECALCIFEROL
  3. ATORVASTATIN/LIPITOR [Concomitant]
  4. CLINDAMYCIN HCI 300MG RANBAXY [Suspect]
     Active Substance: CLINDAMYCIN HYDROCHLORIDE
     Indication: EAR INFECTION
     Dosage: TAKEN BY MOUTH
     Route: 048
     Dates: start: 20151023, end: 20151024

REACTIONS (5)
  - Skin burning sensation [None]
  - Haemorrhage subcutaneous [None]
  - Rash pruritic [None]
  - Rash generalised [None]
  - Skin exfoliation [None]

NARRATIVE: CASE EVENT DATE: 20151028
